FAERS Safety Report 16655391 (Version 1)
Quarter: 2019Q3

REPORT INFORMATION
  Report Type: Spontaneous
  Country: DK (occurrence: DK)
  Receive Date: 20190801
  Receipt Date: 20190801
  Transmission Date: 20191004
  Serious: Yes (Hospitalization)
  Sender: FDA-Public Use
  Company Number: DK-EMD SERONO-E2B_90069564

PATIENT
  Age: 44 Year
  Sex: Female

DRUGS (3)
  1. METFORMIN ACTAVIS [Concomitant]
     Active Substance: METFORMIN HYDROCHLORIDE
     Indication: BLOOD INSULIN INCREASED
     Route: 048
     Dates: start: 20190416
  2. OVITRELLE [Suspect]
     Active Substance: CHORIOGONADOTROPIN ALFA
     Indication: OVULATION INDUCTION
     Dosage: STRENGTH: 250 MICROGRAMS/0.5 ML
     Route: 058
     Dates: start: 20190708
  3. MENOPUR [Concomitant]
     Active Substance: FOLLITROPIN\LUTEINIZING HORMONE
     Indication: BLOOD FOLLICLE STIMULATING HORMONE
     Route: 058
     Dates: start: 20190705, end: 20190708

REACTIONS (4)
  - Dyspnoea [Recovered/Resolved]
  - Syncope [Recovered/Resolved]
  - Blood pressure decreased [Recovered/Resolved]
  - Pruritus [Recovered/Resolved]

NARRATIVE: CASE EVENT DATE: 20190708
